FAERS Safety Report 4631385-9 (Version None)
Quarter: 2005Q2

REPORT INFORMATION
  Report Type: 
  Country: None (occurrence: None)
  Receive Date: 20050407
  Receipt Date: 20050324
  Transmission Date: 20051028
  Serious: Yes (Hospitalization, Other)
  Sender: FDA-Public Use
  Company Number: USA-2003-0012147

PATIENT
  Age: 73 Year
  Sex: Male
  Weight: 77.1 kg

DRUGS (21)
  1. OXYCONTIN [Suspect]
     Indication: PAIN
  2. GLUCOTROL [Concomitant]
  3. METFORMIN HCL [Concomitant]
  4. NEURONTIN [Concomitant]
  5. TEGRETOL (CARGAMAZEPINE) [Concomitant]
  6. ZANTAC [Concomitant]
  7. FLONASE [Concomitant]
  8. LOVASTATIN [Concomitant]
  9. VASOTEC [Concomitant]
  10. LACTOSE (LACTOSE) [Concomitant]
  11. PROSACAR (FINASTERIDE) [Concomitant]
  12. FLOMAX [Concomitant]
  13. CEPHALEXIN [Concomitant]
  14. CELEXA [Concomitant]
  15. NORTRIPTYLINE HCL [Concomitant]
  16. ACTIOS ^LILY^ (PIOGLITAZONE) [Concomitant]
  17. ADVAIR DISKUS (FLUTICASONE PROPIOANTE) [Concomitant]
  18. ALPHAGAN [Concomitant]
  19. AEROBID [Concomitant]
  20. MONOPRIL [Concomitant]
  21. PIROXICAM [Concomitant]

REACTIONS (58)
  - ABDOMINAL PAIN [None]
  - ALANINE AMINOTRANSFERASE INCREASED [None]
  - ANXIETY [None]
  - ARTHRALGIA [None]
  - ASPARTATE AMINOTRANSFERASE INCREASED [None]
  - ASTHENIA [None]
  - BACTERAEMIA [None]
  - BASAL CELL CARCINOMA [None]
  - BEREAVEMENT REACTION [None]
  - BIOPSY SKIN [None]
  - BLEPHARITIS [None]
  - BRONCHITIS ACUTE [None]
  - CHEST DISCOMFORT [None]
  - CHEST PAIN [None]
  - CHILLS [None]
  - CONDITION AGGRAVATED [None]
  - CONSTIPATION [None]
  - CONTUSION [None]
  - COUGH [None]
  - DANDRUFF [None]
  - DEPRESSION [None]
  - DRUG DEPENDENCE [None]
  - DRUG WITHDRAWAL SYNDROME [None]
  - DRY EYE [None]
  - DYSPEPSIA [None]
  - DYSPHONIA [None]
  - EAR DISCOMFORT [None]
  - FALL [None]
  - HYPERTENSION [None]
  - HYPOAESTHESIA [None]
  - INADEQUATE ANALGESIA [None]
  - INSOMNIA [None]
  - JOINT EFFUSION [None]
  - JOINT SPRAIN [None]
  - JOINT SWELLING [None]
  - MENTAL DISORDER [None]
  - MICTURITION URGENCY [None]
  - MUSCLE SPASMS [None]
  - NAIL HYPERTROPHY [None]
  - NASAL CONGESTION [None]
  - NOCTURIA [None]
  - NON-CARDIAC CHEST PAIN [None]
  - OEDEMA PERIPHERAL [None]
  - ONYCHOMYCOSIS [None]
  - OTITIS MEDIA [None]
  - PAIN [None]
  - PAIN IN EXTREMITY [None]
  - PROSTATITIS [None]
  - PRURITUS [None]
  - PYREXIA [None]
  - SCIATICA [None]
  - SEASONAL ALLERGY [None]
  - SEPSIS [None]
  - SNORING [None]
  - URINARY RETENTION [None]
  - URINARY TRACT INFECTION [None]
  - URINE FLOW DECREASED [None]
  - WEIGHT DECREASED [None]
